FAERS Safety Report 14162778 (Version 1)
Quarter: 2017Q4

REPORT INFORMATION
  Report Type: Spontaneous
  Country: FR (occurrence: FR)
  Receive Date: 20171106
  Receipt Date: 20171106
  Transmission Date: 20180321
  Serious: Yes (Other)
  Sender: FDA-Public Use
  Company Number: FR-MERCK KGAA-2033352

PATIENT
  Age: 47 Year
  Sex: Female

DRUGS (1)
  1. NOVOTHYROX [Suspect]
     Active Substance: LEVOTHYROXINE SODIUM
     Dates: start: 201706

REACTIONS (11)
  - Balance disorder [Not Recovered/Not Resolved]
  - Feeling drunk [Not Recovered/Not Resolved]
  - Fatigue [Not Recovered/Not Resolved]
  - Oedema peripheral [Not Recovered/Not Resolved]
  - Gastrointestinal disorder [Not Recovered/Not Resolved]
  - Blood thyroid stimulating hormone normal [Not Recovered/Not Resolved]
  - Alopecia [Not Recovered/Not Resolved]
  - Malaise [Not Recovered/Not Resolved]
  - Pain in extremity [Not Recovered/Not Resolved]
  - Vision blurred [Not Recovered/Not Resolved]
  - Arthralgia [Not Recovered/Not Resolved]

NARRATIVE: CASE EVENT DATE: 20170714
